FAERS Safety Report 4611136-4 (Version None)
Quarter: 2005Q1

REPORT INFORMATION
  Report Type: 
  Country: None (occurrence: None)
  Receive Date: 20050317
  Receipt Date: 20050307
  Transmission Date: 20050727
  Serious: Yes (Death)
  Sender: FDA-Public Use
  Company Number: US-JNJFOC-20050206157

PATIENT
  Age: 43 Year
  Sex: Female
  Weight: 44 kg

DRUGS (1)
  1. FENTANYL [Suspect]
     Indication: DRUG USE FOR UNKNOWN INDICATION
     Route: 065

REACTIONS (5)
  - ACCIDENTAL DEATH [None]
  - CORONARY ARTERY ATHEROSCLEROSIS [None]
  - HYPERTENSIVE HEART DISEASE [None]
  - OVERDOSE [None]
  - VENTRICULAR HYPERTROPHY [None]
